FAERS Safety Report 8871190 (Version 1)
Quarter: 2012Q4

REPORT INFORMATION
  Report Type: 
  Country: US (occurrence: US)
  Receive Date: 20121026
  Receipt Date: 20121026
  Transmission Date: 20130627
  Serious: No
  Sender: FDA-Public Use
  Company Number: US-AMGEN-USASP2012042296

PATIENT
  Age: 54 Year
  Sex: Female
  Weight: 92.97 kg

DRUGS (7)
  1. ENBREL [Suspect]
     Indication: PRODUCT USED FOR UNKNOWN INDICATION
     Dosage: 50 mg, qwk
     Route: 058
  2. FLEXERIL                           /00428402/ [Concomitant]
     Dosage: 10 mg, UNK
  3. ZOLOFT [Concomitant]
     Dosage: 100 mg, UNK
  4. LISINOPRIL [Concomitant]
     Dosage: 2.5 mg, UNK
  5. IBUPROFEN [Concomitant]
     Dosage: 200 mg, UNK
  6. MOBIC [Concomitant]
     Dosage: 15 mg, UNK
  7. LORTAB                             /00607101/ [Concomitant]
     Dosage: UNK (5 Tab)

REACTIONS (5)
  - Exfoliative rash [Unknown]
  - Skin fissures [Unknown]
  - Rhinorrhoea [Unknown]
  - Sinusitis [Unknown]
  - Rash [Unknown]
